FAERS Safety Report 8111577-7 (Version None)
Quarter: 2012Q1

REPORT INFORMATION
  Report Type: 
  Country: None (occurrence: None)
  Receive Date: 20120203
  Receipt Date: 20120123
  Transmission Date: 20120608
  Serious: Yes (Hospitalization)
  Sender: FDA-Public Use
  Company Number: US-UCBSA-050191

PATIENT

DRUGS (1)
  1. CIMZIA [Suspect]
     Route: 058

REACTIONS (1)
  - PNEUMONITIS [None]
